FAERS Safety Report 4825539-6 (Version None)
Quarter: 2005Q4

REPORT INFORMATION
  Report Type: 
  Country: None (occurrence: None)
  Receive Date: 20051111
  Receipt Date: 20050822
  Transmission Date: 20060501
  Serious: No
  Sender: FDA-Public Use
  Company Number: US-GLAXOSMITHKLINE-A0571222A

PATIENT
  Age: 85 Year
  Sex: Male

DRUGS (5)
  1. AVODART [Suspect]
     Indication: BENIGN PROSTATIC HYPERPLASIA
     Dosage: .5MG PER DAY
     Route: 048
     Dates: start: 20050721
  2. LANOXIN [Concomitant]
  3. POTASSIUM CHLORIDE [Concomitant]
  4. LEVOTHROID [Concomitant]
  5. TORSEMIDE [Concomitant]

REACTIONS (1)
  - RASH MACULAR [None]
